FAERS Safety Report 9797729 (Version 1)
Quarter: 2014Q1

REPORT INFORMATION
  Report Type: Spontaneous
  Country: US (occurrence: US)
  Receive Date: 20140106
  Receipt Date: 20140106
  Transmission Date: 20141002
  Serious: Yes (Hospitalization, Other)
  Sender: FDA-Public Use
  Company Number: US-PFIZER INC-2014002423

PATIENT
  Sex: Male

DRUGS (2)
  1. NEURONTIN [Suspect]
     Indication: CONVULSION
     Dosage: 3000 MG, IN A DAY
  2. NEURONTIN [Suspect]
     Indication: MUSCULOSKELETAL DISCOMFORT

REACTIONS (3)
  - Off label use [Unknown]
  - Pneumonia [Unknown]
  - Renal failure [Unknown]
